FAERS Safety Report 5460875-4 (Version None)
Quarter: 2007Q3

REPORT INFORMATION
  Report Type: 
  Country: None (occurrence: None)
  Receive Date: 20070827
  Receipt Date: 20061116
  Transmission Date: 20080115
  Serious: No
  Sender: FDA-Public Use
  Company Number: 257544

PATIENT
  Age: 49 Year
  Sex: Female

DRUGS (2)
  1. VAGIFEM [Suspect]
     Indication: ATROPHIC VULVOVAGINITIS
     Dosage: 1 TAB, QD; VAGINAL, 1 TAB, BIW, VAGINAL
     Route: 067
     Dates: start: 20060911, end: 20060925
  2. VAGIFEM [Suspect]
     Indication: ATROPHIC VULVOVAGINITIS
     Dosage: 1 TAB, QD; VAGINAL, 1 TAB, BIW, VAGINAL
     Route: 067
     Dates: start: 20060926

REACTIONS (1)
  - HYPERSENSITIVITY [None]
